FAERS Safety Report 7288370-0 (Version None)
Quarter: 2011Q1

REPORT INFORMATION
  Report Type: 
  Country: None (occurrence: None)
  Receive Date: 20110211
  Receipt Date: 20110201
  Transmission Date: 20110831
  Serious: Yes (Hospitalization)
  Sender: FDA-Public Use
  Company Number: IT-ROCHE-756706

PATIENT
  Sex: Female

DRUGS (1)
  1. BEVACIZUMAB [Suspect]
     Dosage: BEVACIZUMAB/UNKNOWN TRADE NAME, DISCONTINUED, FREQUENCY: CYCLE.
     Route: 047
     Dates: start: 20110124, end: 20110124

REACTIONS (1)
  - ENDOPHTHALMITIS [None]
